FAERS Safety Report 5312090-2 (Version None)
Quarter: 2007Q2

REPORT INFORMATION
  Report Type: 
  Country: None (occurrence: None)
  Receive Date: 20070430
  Receipt Date: 20060606
  Transmission Date: 20071010
  Serious: No
  Sender: FDA-Public Use
  Company Number: 2006UW11604

PATIENT
  Age: 60 Year
  Sex: Female
  Weight: 81.6 kg

DRUGS (3)
  1. NEXIUM [Suspect]
     Indication: GASTROOESOPHAGEAL REFLUX DISEASE
     Route: 048
  2. PREDNISONE TAB [Concomitant]
     Route: 048
  3. DITROPAN [Concomitant]
     Route: 048

REACTIONS (1)
  - BLEPHAROSPASM [None]
